FAERS Safety Report 10011759 (Version 2)
Quarter: 2014Q2

REPORT INFORMATION
  Report Type: Spontaneous
  Country: FR (occurrence: FR)
  Receive Date: 20140314
  Receipt Date: 20140502
  Transmission Date: 20141212
  Serious: Yes (Hospitalization)
  Sender: FDA-Public Use
  Company Number: FR-BRISTOL-MYERS SQUIBB COMPANY-20415873

PATIENT
  Age: 88 Year
  Sex: Female
  Weight: 62 kg

DRUGS (6)
  1. COUMADINE [Suspect]
     Indication: PULMONARY EMBOLISM
     Dosage: INTERRUPTED ON 14FEB2014?RESTARTED ON 19FEB2014
     Route: 048
     Dates: start: 201402
  2. INNOHEP [Interacting]
     Indication: PULMONARY EMBOLISM
     Dosage: 0.5 ML/D
     Route: 058
     Dates: start: 201402, end: 20140214
  3. RILUZOLE [Concomitant]
  4. CORDARONE [Concomitant]
     Dosage: 1DF: 2 UNIT NOS
  5. AMAREL [Concomitant]
  6. TAHOR [Concomitant]

REACTIONS (4)
  - Haematemesis [Recovered/Resolved]
  - Melaena [Recovered/Resolved]
  - Haemorrhagic anaemia [Recovered/Resolved]
  - Drug interaction [Recovered/Resolved]
